FAERS Safety Report 21610967 (Version 1)
Quarter: 2022Q4

REPORT INFORMATION
  Report Type: Spontaneous
  Country: US (occurrence: US)
  Receive Date: 20221117
  Receipt Date: 20221117
  Transmission Date: 20230113
  Serious: Yes (Other)
  Sender: FDA-Public Use
  Company Number: US-PRECISION DOSE, INC.-2022PRD00006

PATIENT
  Age: 16 Year
  Sex: Male

DRUGS (12)
  1. DEXMEDETOMIDINE [Suspect]
     Active Substance: DEXMEDETOMIDINE
     Indication: Analgesic therapy
     Dosage: 0.3 MCG/KG/HR [INTRA-OPERATIVE TOTAL OF 56.32 MCG]
  2. SEVOFLURANE [Concomitant]
     Active Substance: SEVOFLURANE
     Dosage: MINIMUM ALVEOLAR CONCENTRATION DURING SURGERY BETWEEN 0.2 AND 0.7
  3. PROPOFOL [Concomitant]
     Active Substance: PROPOFOL
     Dosage: 10 MG/ML (INTRA-OPERATIVE TOTAL: 5,084.56 MG)
  4. MIDAZOLAM [Concomitant]
     Active Substance: MIDAZOLAM
     Dosage: 2 MG (INTRA-OPERATIVE TOTAL: 2 MG)
  5. ROCURONIUM [Concomitant]
     Active Substance: ROCURONIUM BROMIDE
     Dosage: INTRA-OPERATIVE TOTAL: 120 MG
  6. FENTANYL [Concomitant]
     Active Substance: FENTANYL
     Dosage: INTRA-OPERATIVE TOTAL: 100 MCG
  7. LIDOCAINE [Concomitant]
     Active Substance: LIDOCAINE
     Dosage: 1% (INTRA-OPERATIVE TOTAL: 100 MG)
  8. REMIFENTANIL [Concomitant]
     Active Substance: REMIFENTANIL
     Dosage: INTRA-OPERATIVE TOTAL: 10.3 MG
  9. ALBUMIN HUMAN [Concomitant]
     Active Substance: ALBUMIN HUMAN
     Dosage: INTRA-OPERATIVE TOTAL: 500 ML, RECOVERY ROOM TOTAL: 500 ML
  10. LACTATED RINGERS SOLUTION [Concomitant]
     Active Substance: CALCIUM CHLORIDE\POTASSIUM CHLORIDE\SODIUM CHLORIDE\SODIUM LACTATE
     Dosage: INTRA-OPERATIVE TOTAL: 3500 ML
  11. SODIUM CHLORIDE [Concomitant]
     Active Substance: SODIUM CHLORIDE
     Dosage: INTRA-OPERATIVE TOTAL 2000 ML, RECOVERY ROOM TOTAL: 50 ML
  12. DESMOPRESSIN [Concomitant]
     Active Substance: DESMOPRESSIN
     Dosage: RECOVERY ROOM TOTAL: 2 UNITS

REACTIONS (1)
  - Diabetes insipidus [Recovered/Resolved]
